FAERS Safety Report 5025223-2 (Version None)
Quarter: 2006Q2

REPORT INFORMATION
  Report Type: 
  Country: None (occurrence: None)
  Receive Date: 20060608
  Receipt Date: 20060608
  Transmission Date: 20061013
  Serious: No
  Sender: FDA-Public Use
  Company Number: None

PATIENT
  Age: 29 Year
  Sex: Female
  Weight: 104.3273 kg

DRUGS (1)
  1. BUSPAR [Suspect]
     Indication: ANXIETY
     Dosage: ONE TABLET THREE TIMES A DAY PO
     Route: 048
     Dates: start: 20060603, end: 20060603

REACTIONS (2)
  - PRURITUS [None]
  - SWELLING FACE [None]
